FAERS Safety Report 6749283-3 (Version None)
Quarter: 2010Q2

REPORT INFORMATION
  Report Type: 
  Country: None (occurrence: None)
  Receive Date: 20100601
  Receipt Date: 20100520
  Transmission Date: 20101027
  Serious: Yes (Other)
  Sender: FDA-Public Use
  Company Number: PHHY2010CA02797

PATIENT
  Sex: Female
  Weight: 46 kg

DRUGS (6)
  1. ACLASTA/ZOLEDRONATE T29581+A+ [Suspect]
     Indication: OSTEOPOROSIS
     Dosage: 5MG/100ML YEARLY
     Dates: start: 20090408
  2. EVISTA [Concomitant]
     Dosage: 670 MG DAILY
  3. HORMONES [Concomitant]
  4. FORTEO [Concomitant]
     Dosage: 20 MG DAILY
  5. VITAMIN D [Concomitant]
     Dosage: 1000 IU DAILY
     Dates: start: 20030101
  6. CALCIUM CARBONATE [Concomitant]
     Dosage: 500 MG DAILY
     Dates: start: 20030101

REACTIONS (4)
  - BONE DENSITY DECREASED [None]
  - BONE PAIN [None]
  - FEELING ABNORMAL [None]
  - RASH [None]
